FAERS Safety Report 6057874-0 (Version None)
Quarter: 2009Q1

REPORT INFORMATION
  Report Type: 
  Country: None (occurrence: None)
  Receive Date: 20090126
  Receipt Date: 20090112
  Transmission Date: 20090719
  Serious: Yes (Other)
  Sender: FDA-Public Use
  Company Number: 2009US000036

PATIENT
  Age: 56 Year
  Sex: Female

DRUGS (1)
  1. LEXISCAN [Suspect]
     Indication: SCAN MYOCARDIAL PERFUSION
     Dosage: 0.4 MG, IV NOS
     Route: 042
     Dates: start: 20081230, end: 20081230

REACTIONS (2)
  - ANAPHYLACTIC REACTION [None]
  - CHEST DISCOMFORT [None]
